FAERS Safety Report 4689409-9 (Version None)
Quarter: 2005Q2

REPORT INFORMATION
  Report Type: 
  Country: None (occurrence: None)
  Receive Date: 20050608
  Receipt Date: 20050414
  Transmission Date: 20051028
  Serious: No
  Sender: FDA-Public Use
  Company Number: 2005-BP-06162BP

PATIENT
  Age: 62 Year
  Sex: Female

DRUGS (5)
  1. SPIRIVA [Suspect]
     Indication: CHRONIC OBSTRUCTIVE PULMONARY DISEASE
     Dosage: 18 MCG (18 MCG), IH
     Route: 055
     Dates: start: 20050407
  2. ADVAIR DISKUS 100/50 [Concomitant]
  3. HYDROCHLOROTHIAZIDE [Concomitant]
  4. MOTRIN [Concomitant]
  5. TYLENOL [Concomitant]

REACTIONS (5)
  - DRY MOUTH [None]
  - DRY SKIN [None]
  - PRURITUS [None]
  - RASH [None]
  - THERAPEUTIC RESPONSE DECREASED [None]
